FAERS Safety Report 5628512-3 (Version None)
Quarter: 2008Q1

REPORT INFORMATION
  Report Type: 
  Country: None (occurrence: None)
  Receive Date: 20080215
  Receipt Date: 20080206
  Transmission Date: 20080703
  Serious: Yes (Hospitalization)
  Sender: FDA-Public Use
  Company Number: AU-PFIZER INC-2008011273

PATIENT
  Age: 53 Year
  Sex: Female

DRUGS (4)
  1. ZELDOX (CAPSULES) [Suspect]
     Indication: BODY DYSMORPHIC DISORDER
  2. ZELDOX (CAPSULES) [Suspect]
     Indication: MAJOR DEPRESSION
  3. LUVOX [Concomitant]
  4. COVERSYL [Concomitant]

REACTIONS (1)
  - TIC [None]
